FAERS Safety Report 19014812 (Version 4)
Quarter: 2021Q2

REPORT INFORMATION
  Report Type: Other
  Country: US (occurrence: US)
  Receive Date: 20210317
  Receipt Date: 20210504
  Transmission Date: 20210717
  Serious: Yes (Hospitalization, Other)
  Sender: FDA-Public Use
  Company Number: US-ROCHE-2788035

PATIENT
  Age: 70 Year
  Sex: Female

DRUGS (1)
  1. OCREVUS [Suspect]
     Active Substance: OCRELIZUMAB
     Indication: RELAPSING-REMITTING MULTIPLE SCLEROSIS
     Dosage: ON 24/JAN/2019, 26/JUL/2019, 22/JAN/2020, 22/JUL/2020, 22/JAN/2021, SHE RECEIVED TREATMENT.
     Route: 065
     Dates: start: 20180613

REACTIONS (2)
  - Multiple sclerosis [Unknown]
  - COVID-19 [Recovering/Resolving]

NARRATIVE: CASE EVENT DATE: 20210227
